FAERS Safety Report 9384874 (Version 1)
Quarter: 2013Q3

REPORT INFORMATION
  Report Type: Spontaneous
  Country: JP (occurrence: None)
  Receive Date: 20130701
  Receipt Date: 20130701
  Transmission Date: 20140515
  Serious: Yes (Other)
  Sender: FDA-Public Use
  Company Number: SYM-2013-05135

PATIENT
  Age: 71 Year
  Sex: Female

DRUGS (5)
  1. FLUOROURACIL [Suspect]
     Indication: METASTASES TO LIVER
     Dates: start: 2010
  2. OXALIPLATIN (OXALIPLATIN) (OXALIPLATIN) [Suspect]
     Indication: METASTASES TO LIVER
     Dates: start: 2010
  3. CAPECITABINE [Suspect]
     Indication: CHEMOTHERAPY
     Dates: start: 2011
  4. LEUCOVORIN [Suspect]
     Indication: METASTASES TO LIVER
     Dates: start: 2010
  5. BEVACIZUMAB [Suspect]
     Indication: METASTASES TO LIVER
     Dates: start: 2010

REACTIONS (3)
  - Malaise [None]
  - Decreased appetite [None]
  - Palmar-plantar erythrodysaesthesia syndrome [None]
